FAERS Safety Report 8575298-9 (Version None)
Quarter: 2012Q3

REPORT INFORMATION
  Report Type: 
  Country: None (occurrence: None)
  Receive Date: 20120807
  Receipt Date: 20120801
  Transmission Date: 20120928
  Serious: Yes (Death)
  Sender: FDA-Public Use
  Company Number: US-PFIZER INC-2012166699

PATIENT
  Age: 58 Year
  Sex: Male
  Weight: 89.8 kg

DRUGS (15)
  1. FUROSEMIDE [Concomitant]
     Dosage: 40 MG,1 PO AS DIRECTED
     Route: 048
  2. XALKORI [Suspect]
     Indication: NON-SMALL CELL LUNG CANCER
     Dosage: 250 MG, 2X/DAY
     Route: 048
     Dates: start: 20120501
  3. XALKORI [Suspect]
     Indication: METASTASES TO LIVER
     Dosage: UNK
  4. SPIRONOLACTONE [Concomitant]
     Dosage: 50 MG, 1X/DAY
     Route: 048
  5. CIPROFLOXACIN HYDROCHLORIDE [Concomitant]
     Dosage: 500 MG, 2X/DAY
     Route: 048
  6. METOPROLOL SUCCINATE [Concomitant]
     Dosage: 50 MG SUSTAINED RELEASE 24HR TAKE 3 PO DAILY
     Route: 048
  7. PROCHLORPERAZINE MALEATE [Concomitant]
     Indication: NAUSEA
     Dosage: 10 MG TABLET(S) TAKE 1 PO Q6H PRN
  8. ZOFRAN [Concomitant]
     Indication: NAUSEA
     Dosage: 8 MG Q8H PRN
  9. WARFARIN SODIUM [Concomitant]
     Dosage: 1 MG, 1X/DAY
     Route: 048
  10. FOLIC ACID [Concomitant]
     Dosage: 1 MG, UNK
     Route: 048
  11. ACETAMINOPHEN AND HYDROCODONE BITARTRATE [Concomitant]
     Indication: PAIN
     Dosage: 7.5-750MG Q4-6H PRN
     Route: 048
  12. ACETYLSALICYLIC ACID [Concomitant]
     Dosage: 81 MG, 1X/DAY
     Route: 048
  13. EZETIMIBE/SIMVASTATIN [Concomitant]
     Dosage: 10MG-20MG DAILY
     Route: 048
  14. IMODIUM MULTI-SYMPTOM RELIEF [Concomitant]
     Dosage: 2-125MG TABLET(S), CHEWABLE TAKE 1 PO AS DIRECTED
     Route: 048
  15. LOMOTIL [Concomitant]
     Dosage: 2.5-.025MG QID PRN
     Route: 048

REACTIONS (2)
  - DISEASE PROGRESSION [None]
  - NON-SMALL CELL LUNG CANCER [None]
